FAERS Safety Report 7776780-4 (Version None)
Quarter: 2011Q3

REPORT INFORMATION
  Report Type: 
  Country: None (occurrence: None)
  Receive Date: 20110926
  Receipt Date: 20110506
  Transmission Date: 20111222
  Serious: No
  Sender: FDA-Public Use
  Company Number: US-BAYER-2011-040937

PATIENT
  Age: 71 Year
  Sex: Female
  Weight: 70 kg

DRUGS (5)
  1. TOPROL-XL [Concomitant]
  2. ALEVE (CAPLET) [Suspect]
     Indication: ARTHRITIS
     Dosage: 1 U, QD
     Route: 048
  3. ANTACIDS [Concomitant]
  4. AZOR [Concomitant]
  5. SYNTHROID [Concomitant]

REACTIONS (1)
  - NO ADVERSE EVENT [None]
